FAERS Safety Report 7285307-5 (Version None)
Quarter: 2011Q1

REPORT INFORMATION
  Report Type: 
  Country: None (occurrence: None)
  Receive Date: 20110201
  Receipt Date: 20110124
  Transmission Date: 20110831
  Serious: Yes (Hospitalization, Other)
  Sender: FDA-Public Use
  Company Number: 2010SP042947

PATIENT
  Age: 24 Year
  Sex: Female
  Weight: 90.7194 kg

DRUGS (1)
  1. NUVARING [Suspect]
     Indication: CONTRACEPTION
     Dates: start: 20030401, end: 20090901

REACTIONS (17)
  - PNEUMONITIS [None]
  - HAEMOPTYSIS [None]
  - LYMPHOCYTE PERCENTAGE DECREASED [None]
  - INTERNATIONAL NORMALISED RATIO DECREASED [None]
  - ATELECTASIS [None]
  - ANXIETY [None]
  - NEUTROPHIL PERCENTAGE INCREASED [None]
  - PULMONARY ARTERY THROMBOSIS [None]
  - DRUG EXPOSURE BEFORE PREGNANCY [None]
  - LUNG INFILTRATION [None]
  - PULMONARY EMBOLISM [None]
  - HEADACHE [None]
  - TWIN PREGNANCY [None]
  - PROTEIN S DEFICIENCY [None]
  - ELECTROCARDIOGRAM T WAVE ABNORMAL [None]
  - NAUSEA [None]
  - HAEMATOCRIT DECREASED [None]
